FAERS Safety Report 4966870-3 (Version None)
Quarter: 2006Q2

REPORT INFORMATION
  Report Type: 
  Country: None (occurrence: None)
  Receive Date: 20060407
  Receipt Date: 20060317
  Transmission Date: 20061013
  Serious: Yes (Hospitalization)
  Sender: FDA-Public Use
  Company Number: US-MERCK-0603USA03093

PATIENT
  Age: 63 Year
  Sex: Female
  Weight: 86 kg

DRUGS (7)
  1. VIOXX [Suspect]
     Indication: ARTHRALGIA
     Route: 048
     Dates: start: 20040101, end: 20040101
  2. ASPIRIN [Concomitant]
     Route: 065
  3. PROXEN [Concomitant]
     Indication: INFLAMMATION
     Route: 065
     Dates: start: 19981118
  4. FOLIC ACID [Concomitant]
     Route: 065
  5. CYCLOBENZAPRINE HYDROCHLORIDE [Concomitant]
     Indication: MYALGIA
     Route: 065
     Dates: start: 20021118, end: 20040924
  6. KETOROLAC TROMETHAMINE [Concomitant]
     Indication: INFLAMMATION
     Route: 065
     Dates: start: 20030123, end: 20050210
  7. PROTONIX [Concomitant]
     Indication: GASTROINTESTINAL DISORDER
     Route: 065

REACTIONS (3)
  - CEREBROVASCULAR ACCIDENT [None]
  - GALLBLADDER DISORDER [None]
  - MYOCARDIAL INFARCTION [None]
